FAERS Safety Report 13920190 (Version 9)
Quarter: 2017Q4

REPORT INFORMATION
  Report Type: Spontaneous
  Country: US (occurrence: US)
  Receive Date: 20170830
  Receipt Date: 20171215
  Transmission Date: 20180320
  Serious: No
  Sender: FDA-Public Use
  Company Number: US-PFIZER INC-2017349580

PATIENT
  Age: 66 Year
  Sex: Male

DRUGS (3)
  1. SUTENT [Suspect]
     Active Substance: SUNITINIB MALATE
     Indication: RENAL CANCER METASTATIC
     Dosage: 50 MG, (CYCLIC, 2 WEEKS ON/2 WEEKS OFF)
     Route: 048
     Dates: start: 20170824, end: 2017
  2. COZAAR [Concomitant]
     Active Substance: LOSARTAN POTASSIUM
     Dosage: UNK
  3. CARDIZEM [Concomitant]
     Active Substance: DILTIAZEM HYDROCHLORIDE
     Dosage: UNK

REACTIONS (11)
  - Yellow skin [Unknown]
  - Blister [Recovering/Resolving]
  - Chromaturia [Unknown]
  - Diarrhoea [Recovered/Resolved]
  - Skin discolouration [Not Recovered/Not Resolved]
  - Haemoptysis [Recovered/Resolved]
  - Skin exfoliation [Unknown]
  - Pain in extremity [Recovered/Resolved]
  - Blood glucose increased [Unknown]
  - Vitamin D decreased [Unknown]
  - Hair disorder [Unknown]

NARRATIVE: CASE EVENT DATE: 2017
